FAERS Safety Report 18742120 (Version 1)
Quarter: 2021Q1

REPORT INFORMATION
  Report Type: Spontaneous
  Country: FR (occurrence: FR)
  Receive Date: 20210114
  Receipt Date: 20210114
  Transmission Date: 20210419
  Serious: Yes (Other)
  Sender: FDA-Public Use
  Company Number: FR-MYLANLABS-2020M1100960

PATIENT
  Age: 78 Year
  Sex: Male
  Weight: 88 kg

DRUGS (3)
  1. AZACITIDINE MYLAN [Suspect]
     Active Substance: AZACITIDINE
     Indication: ACUTE MYELOID LEUKAEMIA
  2. AZACITIDINE MYLAN [Suspect]
     Active Substance: AZACITIDINE
     Indication: CHRONIC KIDNEY DISEASE
  3. AZACITIDINE MYLAN [Suspect]
     Active Substance: AZACITIDINE
     Indication: ACUTE LEUKAEMIA
     Dosage: 100 MILLIGRAM, TOTAL
     Route: 058
     Dates: start: 20201125

REACTIONS (4)
  - Product quality issue [Recovered/Resolved]
  - Wrong dose [Recovered/Resolved]
  - Product use complaint [Recovered/Resolved]
  - Incorrect dosage administered [Unknown]

NARRATIVE: CASE EVENT DATE: 20201125
